FAERS Safety Report 8915663 (Version 1)
Quarter: 2012Q4

REPORT INFORMATION
  Report Type: 
  Country: US (occurrence: US)
  Receive Date: 20121119
  Receipt Date: 20121119
  Transmission Date: 20130627
  Serious: Yes (Other)
  Sender: FDA-Public Use
  Company Number: US-ELI_LILLY_AND_COMPANY-US201203000167

PATIENT
  Age: 85 Year
  Sex: Female

DRUGS (6)
  1. FORTEO [Suspect]
     Indication: OSTEOPOROSIS
     Dosage: 20 ug, qd
     Route: 065
  2. FORTEO [Suspect]
     Dosage: 20 ug, qd
     Route: 065
  3. FORTEO [Suspect]
     Dosage: 20 ug, qd
     Route: 065
  4. FORTEO [Suspect]
     Dosage: 20 ug, qd
  5. FORTEO [Suspect]
     Dosage: 20 ug, qd
  6. HYDROCODONE [Concomitant]
     Indication: PAIN

REACTIONS (16)
  - Hip fracture [Unknown]
  - Fall [Not Recovered/Not Resolved]
  - Periorbital contusion [Recovered/Resolved]
  - Head injury [Recovered/Resolved]
  - Fall [Recovered/Resolved]
  - Contusion [Unknown]
  - Memory impairment [Unknown]
  - Rash papular [Unknown]
  - Pruritus [Unknown]
  - Oedema peripheral [Recovering/Resolving]
  - Joint swelling [Recovering/Resolving]
  - Injection site bruising [Unknown]
  - Pain [Unknown]
  - Drug dose omission [Unknown]
  - Incorrect drug administration duration [Unknown]
  - Humerus fracture [Unknown]
